FAERS Safety Report 7233410-8 (Version None)
Quarter: 2011Q1

REPORT INFORMATION
  Report Type: 
  Country: None (occurrence: None)
  Receive Date: 20110119
  Receipt Date: 20110111
  Transmission Date: 20110831
  Serious: Yes (Hospitalization)
  Sender: FDA-Public Use
  Company Number: FR-BRISTOL-MYERS SQUIBB COMPANY-15490527

PATIENT
  Age: 61 Year
  Sex: Male
  Weight: 99 kg

DRUGS (3)
  1. CISPLATIN [Suspect]
     Indication: HEAD AND NECK CANCER
     Route: 042
     Dates: start: 20101221, end: 20101221
  2. CETUXIMAB [Suspect]
     Indication: HEAD AND NECK CANCER
     Dosage: STOPPED:21DEC10 RESTARTED:28DEC10-STOPPED:04JAN2011 DOSAGE:540MG 1 IN 1 WK
     Route: 042
     Dates: start: 20101221, end: 20110104
  3. FLUOROURACIL [Suspect]
     Indication: HEAD AND NECK CANCER
     Route: 042
     Dates: start: 20101221, end: 20101224

REACTIONS (3)
  - HYPERTHERMIA [None]
  - BACTERAEMIA [None]
  - NEUTROPENIA [None]
